FAERS Safety Report 21662850 (Version 1)
Quarter: 2022Q4

REPORT INFORMATION
  Report Type: Spontaneous
  Country: IT (occurrence: IT)
  Receive Date: 20221130
  Receipt Date: 20221130
  Transmission Date: 20230112
  Serious: Yes (Life-Threatening)
  Sender: FDA-Public Use
  Company Number: IT-PFIZER INC-PV202200104962

PATIENT
  Age: 3 Year
  Sex: Female

DRUGS (4)
  1. METHYLPREDNISOLONE [Suspect]
     Active Substance: METHYLPREDNISOLONE
     Dosage: 1.8 MG/KG, DAILY
  2. AZITHROMYCIN [Suspect]
     Active Substance: AZITHROMYCIN
  3. CEFTRIAXONE [Suspect]
     Active Substance: CEFTRIAXONE
  4. ACYCLOVIR [Suspect]
     Active Substance: ACYCLOVIR
     Dosage: 30 MG/KG, DAILY

REACTIONS (1)
  - Drug ineffective [Unknown]
